FAERS Safety Report 22158785 (Version 1)
Quarter: 2023Q1

REPORT INFORMATION
  Report Type: Spontaneous
  Country: None (occurrence: US)
  Receive Date: 20230331
  Receipt Date: 20230331
  Transmission Date: 20230417
  Serious: No
  Sender: FDA-Public Use
  Company Number: US-Ajanta Pharma USA Inc.-2139738

PATIENT
  Age: 60 Year
  Sex: Female
  Weight: 52.727 kg

DRUGS (1)
  1. CHOLESTYRAMINE [Suspect]
     Active Substance: CHOLESTYRAMINE
     Indication: Colitis
     Route: 048
     Dates: start: 202204

REACTIONS (7)
  - Dehydration [Not Recovered/Not Resolved]
  - Dry mouth [Not Recovered/Not Resolved]
  - Malnutrition [Not Recovered/Not Resolved]
  - Renal function test abnormal [Not Recovered/Not Resolved]
  - Weight gain poor [Not Recovered/Not Resolved]
  - Weight decreased [Not Recovered/Not Resolved]
  - Off label use [Not Recovered/Not Resolved]

NARRATIVE: CASE EVENT DATE: 20220101
